FAERS Safety Report 10222933 (Version 1)
Quarter: 2014Q2

REPORT INFORMATION
  Report Type: Spontaneous
  Country: PH (occurrence: PH)
  Receive Date: 20140607
  Receipt Date: 20140607
  Transmission Date: 20141212
  Serious: Yes (Death, Other)
  Sender: FDA-Public Use
  Company Number: PH-009507513-1406PHL002320

PATIENT
  Age: 87 Year
  Sex: Female

DRUGS (1)
  1. FOSAVANCE [Suspect]
     Indication: OSTEOPOROSIS
     Dosage: 1 TABLET, QW, SUSPECT PRODUCT STRENGTH: 70/5600 UNITS UNSPECIFIED
     Route: 048

REACTIONS (1)
  - Myocardial infarction [Fatal]
